FAERS Safety Report 7599652-7 (Version None)
Quarter: 2011Q2

REPORT INFORMATION
  Report Type: 
  Country: None (occurrence: None)
  Receive Date: 20110629
  Receipt Date: 20110615
  Transmission Date: 20111010
  Serious: Yes (Other)
  Sender: FDA-Public Use
  Company Number: 2011MA007224

PATIENT
  Age: 68 Year
  Sex: Female

DRUGS (1)
  1. TRIAMCINOLONE ACETONIDE [Suspect]
     Indication: TENOSYNOVITIS STENOSANS
     Dosage: 5 MG;ID

REACTIONS (7)
  - PAIN [None]
  - HYPERHIDROSIS [None]
  - HYPOAESTHESIA [None]
  - HYPERSENSITIVITY [None]
  - PAIN IN EXTREMITY [None]
  - COMPLEX REGIONAL PAIN SYNDROME [None]
  - SKIN DISCOLOURATION [None]
